FAERS Safety Report 4288927-5 (Version None)
Quarter: 2004Q1

REPORT INFORMATION
  Report Type: 
  Country: None (occurrence: None)
  Receive Date: 20040205
  Receipt Date: 20030605
  Transmission Date: 20041129
  Serious: Yes (Other)
  Sender: FDA-Public Use
  Company Number: 30014519-NA01-1

PATIENT
  Sex: Male
  Weight: 74.8435 kg

DRUGS (13)
  1. 5B9876 - DIANEAL PD-2 SOLUTION ULTRABAG, 2.5% DEXTROSE [Suspect]
     Indication: PERITONEAL DIALYSIS
     Dosage: 2L X 4 EXCHANGES QD IP
     Route: 033
     Dates: start: 20030301, end: 20030608
  2. 5B9896 DIANEAL 4.25% PRN [Concomitant]
  3. MULTIVITAMIN 1 PO QD [Concomitant]
  4. CHROMAGEN 1 PO QD [Concomitant]
  5. VASOTEC .5MG PO QD [Concomitant]
  6. FOLIC ACID 1 MG PO QD [Concomitant]
  7. VITAMIN C 1000 MG PO QD [Concomitant]
  8. COUMADIN [Concomitant]
  9. HEPARIN 1000U PER EXCHANGE FOR FIBRIN [Concomitant]
  10. SALINE SOLUTION NASAL SPRAY PRN [Concomitant]
  11. EPOGEN 10,000U QWK [Concomitant]
  12. EPOGEN 5,000U UNK [Concomitant]
  13. SENEKOT 2 PO QD [Concomitant]

REACTIONS (1)
  - PERITONITIS [None]
